FAERS Safety Report 5921373-4 (Version None)
Quarter: 2008Q4

REPORT INFORMATION
  Report Type: 
  Country: None (occurrence: None)
  Receive Date: 20081014
  Receipt Date: 20081006
  Transmission Date: 20090506
  Serious: Yes (Hospitalization)
  Sender: FDA-Public Use
  Company Number: 6046261

PATIENT
  Age: 68 Year
  Sex: Female

DRUGS (8)
  1. LEVOTHYROXINE SODIUM [Suspect]
     Indication: WRONG DRUG ADMINISTERED
     Dosage: 1 DOSAGE FORMS, 1 IN 1 D) ORAL
     Route: 048
     Dates: start: 20080217
  2. BISOPROLOL FUMARATE [Suspect]
     Indication: WRONG DRUG ADMINISTERED
     Dosage: 5 MG (5 MG, 1 IN 1 D) ORAL
     Route: 048
     Dates: start: 20080217
  3. ADANCOR 10 MG (10 MG, TABLET) (NICORANDIL) [Suspect]
     Indication: WRONG DRUG ADMINISTERED
     Dosage: 1 DOSAGE FORMS (1 DOSAGE FORMS, 1 IN 1 D) ORAL
     Route: 048
     Dates: start: 20080217
  4. VASTAREL (35 MG, PROLONGED-RELEASE TABLET) (TRIMETAZIDINE HYDROCHLORID [Suspect]
     Indication: WRONG DRUG ADMINISTERED
     Dosage: 1 DOSAGE FORMS (1 DOSAGE FORMS, 1 IN 1 D) ORAL
     Route: 048
     Dates: start: 20080217
  5. LASILIX (20 MG, TABLET) (FUROSEMIDE) [Suspect]
     Indication: WRONG DRUG ADMINISTERED
     Dosage: 1 DOSAGE FORMS (1 DOSAGE FORMS, 1 IN 1 D) ORAL
     Route: 048
     Dates: start: 20080217
  6. RAMIPRIL [Suspect]
     Indication: WRONG DRUG ADMINISTERED
     Dosage: 1 DOSAGE FORMS (1 DOSAGE FORMS, 1 IN 1 D) ORAL
     Route: 048
     Dates: start: 20080217
  7. ESCITALOPRAM OXALATE [Suspect]
     Indication: WRONG DRUG ADMINISTERED
     Dosage: 5 MG (5 MG, 1 IN 1 D) ORAL
     Route: 048
     Dates: start: 20080217
  8. POTASSIUM CHLORIDE [Suspect]
     Indication: WRONG DRUG ADMINISTERED
     Dosage: 1 DOSAGE FORMS (1 DOSAGE FORMS, 1 IN 1 D) ORAL
     Route: 048
     Dates: start: 20080217

REACTIONS (2)
  - NO ADVERSE EVENT [None]
  - WRONG DRUG ADMINISTERED [None]
